FAERS Safety Report 21502505 (Version 1)
Quarter: 2022Q4

REPORT INFORMATION
  Report Type: Spontaneous
  Country: US (occurrence: US)
  Receive Date: 20221025
  Receipt Date: 20221025
  Transmission Date: 20230113
  Serious: Yes (Other)
  Sender: FDA-Public Use
  Company Number: US-drreddys-LIT/USA/22/0156158

PATIENT
  Age: 65 Year
  Sex: Male

DRUGS (4)
  1. NALOXONE HYDROCHLORIDE [Suspect]
     Active Substance: NALOXONE HYDROCHLORIDE
     Indication: Product used for unknown indication
  2. FENTANYL CITRATE [Suspect]
     Active Substance: FENTANYL CITRATE
     Indication: Product used for unknown indication
  3. DILTIAZEM [Suspect]
     Active Substance: DILTIAZEM
     Indication: Product used for unknown indication
  4. OXYCODONE [Suspect]
     Active Substance: OXYCODONE
     Indication: Product used for unknown indication

REACTIONS (7)
  - Drug ineffective [Unknown]
  - Circulatory collapse [Unknown]
  - Respiratory acidosis [Unknown]
  - Toxicity to various agents [Unknown]
  - Respiratory depression [Unknown]
  - Overdose [Unknown]
  - Drug abuse [Unknown]
